FAERS Safety Report 8294359-5 (Version None)
Quarter: 2012Q2

REPORT INFORMATION
  Report Type: 
  Country: None (occurrence: None)
  Receive Date: 20120418
  Receipt Date: 20120409
  Transmission Date: 20120825
  Serious: Yes (Hospitalization, Other)
  Sender: FDA-Public Use
  Company Number: JP-SANOFI-AVENTIS-2012SA024192

PATIENT
  Age: 75 Year
  Sex: Male
  Weight: 50.1 kg

DRUGS (6)
  1. ALL OTHER THERAPEUTIC PRODUCTS [Concomitant]
  2. SOLOSTAR [Suspect]
     Indication: DEVICE THERAPY
     Dates: start: 20080822
  3. ALL OTHER THERAPEUTIC PRODUCTS [Concomitant]
  4. DRUG USED IN DIABETES [Concomitant]
     Indication: TYPE 2 DIABETES MELLITUS
     Dates: start: 20070201
  5. ORAL ANTIDIABETICS [Concomitant]
     Indication: TYPE 2 DIABETES MELLITUS
     Dates: start: 20050101
  6. LANTUS [Suspect]
     Indication: TYPE 2 DIABETES MELLITUS
     Route: 058
     Dates: start: 20080822

REACTIONS (2)
  - PERIPHERAL VASCULAR DISORDER [None]
  - ANGINA PECTORIS [None]
